FAERS Safety Report 9491731 (Version 1)
Quarter: 2013Q3

REPORT INFORMATION
  Report Type: Not Available
  Country: US (occurrence: US)
  Receive Date: 20130919
  Receipt Date: 20130919
  Transmission Date: 20140515
  Serious: Yes (Other)
  Sender: FDA-Public Use
  Company Number: US-LUNDBECK-DKLU1081564

PATIENT
  Sex: Male

DRUGS (2)
  1. SABRIL (FOR ORAL SOLUTION) [Suspect]
     Indication: INFANTILE SPASMS
     Dosage: 1 PACKET IN AM
     Dates: start: 20111020
  2. SABRIL (FOR ORAL SOLUTION) [Suspect]
     Dosage: 2 PACKETS IN PM
     Dates: start: 20111020

REACTIONS (1)
  - Convulsion [Unknown]
